FAERS Safety Report 10745414 (Version 2)
Quarter: 2015Q1

REPORT INFORMATION
  Report Type: Spontaneous
  Country: GB (occurrence: GB)
  Receive Date: 20150128
  Receipt Date: 20150205
  Transmission Date: 20150721
  Serious: Yes (Other)
  Sender: FDA-Public Use
  Company Number: GB-CELGENE-GBR-2015012788

PATIENT
  Age: 75 Year
  Sex: Male

DRUGS (2)
  1. AZACITIDINE INJECTABLE [Suspect]
     Active Substance: AZACITIDINE
     Dosage: 85% DOSE REDUCTION
     Route: 058
  2. AZACITIDINE INJECTABLE [Suspect]
     Active Substance: AZACITIDINE
     Indication: REFRACTORY ANAEMIA WITH AN EXCESS OF BLASTS
     Route: 058
     Dates: start: 2011, end: 201412

REACTIONS (3)
  - Dizziness postural [Not Recovered/Not Resolved]
  - Aphasia [Not Recovered/Not Resolved]
  - Areflexia [Not Recovered/Not Resolved]

NARRATIVE: CASE EVENT DATE: 201410
